FAERS Safety Report 10011301 (Version 1)
Quarter: 2014Q1

REPORT INFORMATION
  Report Type: Spontaneous
  Country: US (occurrence: US)
  Receive Date: 20140314
  Receipt Date: 20140314
  Transmission Date: 20141002
  Serious: No
  Sender: FDA-Public Use
  Company Number: US-ENDO PHARMACEUTICALS INC.-OXYC20130021

PATIENT
  Sex: Male
  Weight: 112.59 kg

DRUGS (2)
  1. OXYCODONE HCL 30MG [Suspect]
     Indication: PAIN
     Route: 048
  2. ROXICODONE [Concomitant]
     Indication: PAIN
     Route: 048

REACTIONS (3)
  - Abdominal discomfort [Not Recovered/Not Resolved]
  - Dizziness [Not Recovered/Not Resolved]
  - Somnolence [Not Recovered/Not Resolved]
